FAERS Safety Report 7578221-9 (Version None)
Quarter: 2011Q2

REPORT INFORMATION
  Report Type: 
  Country: None (occurrence: None)
  Receive Date: 20110628
  Receipt Date: 20110621
  Transmission Date: 20111010
  Serious: Yes (Other)
  Sender: FDA-Public Use
  Company Number: B0727777A

PATIENT
  Age: 49 Year
  Sex: Female

DRUGS (4)
  1. PAROXETINE HCL [Suspect]
     Indication: DEPRESSION
     Route: 065
  2. ESCITALOPRAM OXALATE [Concomitant]
     Indication: DEPRESSION
     Route: 065
     Dates: start: 20110101, end: 20110101
  3. ENBREL [Concomitant]
     Route: 065
  4. ANAFRANIL [Concomitant]
     Indication: DEPRESSION
     Route: 042
     Dates: start: 20110201

REACTIONS (4)
  - MENTAL DISORDER [None]
  - SUICIDAL IDEATION [None]
  - TREMOR [None]
  - CRYING [None]
